FAERS Safety Report 15896173 (Version 3)
Quarter: 2019Q1

REPORT INFORMATION
  Report Type: Other
  Country: DE (occurrence: DE)
  Receive Date: 20190131
  Receipt Date: 20190220
  Transmission Date: 20190417
  Serious: Yes (Hospitalization, Other)
  Sender: FDA-Public Use
  Company Number: DE-ACTELION-A-CH2019-185540

PATIENT
  Age: 51 Year
  Sex: Male

DRUGS (4)
  1. OPSUMIT [Suspect]
     Active Substance: MACITENTAN
     Indication: PULMONARY ARTERIAL HYPERTENSION
     Dosage: UNK
     Route: 048
     Dates: start: 2014
  2. TACROLIMUS. [Suspect]
     Active Substance: TACROLIMUS
     Indication: PULMONARY ARTERIAL HYPERTENSION
     Dosage: UNK
     Route: 065
     Dates: start: 201602
  3. VENTAVIS [Suspect]
     Active Substance: ILOPROST
     Indication: PULMONARY ARTERIAL HYPERTENSION
     Dosage: UNK
     Route: 055
     Dates: start: 2013
  4. SILDENAFIL. [Suspect]
     Active Substance: SILDENAFIL
     Indication: PULMONARY ARTERIAL HYPERTENSION
     Dosage: UNK
     Route: 065
     Dates: start: 2006

REACTIONS (10)
  - Epistaxis [Recovering/Resolving]
  - Cardiac index increased [Unknown]
  - Pulmonary arterial hypertension [Unknown]
  - Spontaneous intrahepatic portosystemic venous shunt [Unknown]
  - Brain natriuretic peptide increased [Unknown]
  - Gastrointestinal haemorrhage [Recovered/Resolved]
  - Transfusion [Unknown]
  - Condition aggravated [Unknown]
  - Disease progression [Unknown]
  - Pulmonary vascular resistance abnormality [Unknown]

NARRATIVE: CASE EVENT DATE: 201408
